FAERS Safety Report 9875775 (Version 2)
Quarter: 2014Q1

REPORT INFORMATION
  Report Type: Other
  Country: US (occurrence: US)
  Receive Date: 20140206
  Receipt Date: 20140206
  Transmission Date: 20141002
  Serious: No
  Sender: FDA-Public Use
  Company Number: US-ACORDA-ACO_36563_2013

PATIENT
  Sex: Female

DRUGS (4)
  1. AMPYRA [Suspect]
     Indication: GAIT DISTURBANCE
     Dosage: 10 MG, BID
     Route: 048
     Dates: start: 20130502, end: 2013
  2. LEVOTHYROXINE [Concomitant]
     Dosage: 112 ?G, UNK
     Dates: start: 1986
  3. PERCOCET [Concomitant]
     Dosage: UNK
  4. VITAMIN D [Concomitant]
     Dosage: 1000 IU, UNK
     Dates: start: 2012

REACTIONS (1)
  - Drug ineffective [Recovered/Resolved]
